FAERS Safety Report 9122205 (Version 1)
Quarter: 2013Q1

REPORT INFORMATION
  Report Type: Spontaneous
  Country: US (occurrence: US)
  Receive Date: 20130114
  Receipt Date: 20130114
  Transmission Date: 20140127
  Serious: No
  Sender: FDA-Public Use
  Company Number: US-BIOGENIDEC-2013BI001523

PATIENT
  Age: 19 Year
  Sex: Male

DRUGS (2)
  1. TYSABRI [Suspect]
     Indication: CROHN^S DISEASE
     Route: 042
     Dates: start: 20130103
  2. BENADRYL [Concomitant]
     Indication: PREMEDICATION

REACTIONS (1)
  - Chest pain [Not Recovered/Not Resolved]
